FAERS Safety Report 16073006 (Version 3)
Quarter: 2019Q1

REPORT INFORMATION
  Report Type: Spontaneous
  Country: CA (occurrence: CA)
  Receive Date: 20190314
  Receipt Date: 20190329
  Transmission Date: 20190418
  Serious: Yes (Hospitalization, Other)
  Sender: FDA-Public Use
  Company Number: CA-GILEAD-2019-0395993

PATIENT
  Age: 57 Year
  Sex: Male
  Weight: 79 kg

DRUGS (4)
  1. VOSEVI [Suspect]
     Active Substance: SOFOSBUVIR\VELPATASVIR\VOXILAPREVIR
     Indication: HEPATITIS C
     Dosage: UNK
     Route: 065
  2. ADVIL [IBUPROFEN] [Concomitant]
     Active Substance: IBUPROFEN
     Indication: PAIN
     Dosage: 200 MG
     Route: 048
  3. AMOXICILLIN. [Concomitant]
     Active Substance: AMOXICILLIN
     Indication: DENTAL OPERATION
     Dosage: 1500 MG, QD
     Route: 048
     Dates: start: 20190220, end: 20190227
  4. RIBAVIRIN. [Concomitant]
     Active Substance: RIBAVIRIN
     Indication: HEPATITIS C
     Dosage: 600 MG
     Route: 048
     Dates: start: 20190110

REACTIONS (2)
  - Stress [Unknown]
  - Chorioretinopathy [Recovering/Resolving]

NARRATIVE: CASE EVENT DATE: 20190227
